FAERS Safety Report 8790596 (Version 1)
Quarter: 2012Q4

REPORT INFORMATION
  Report Type: Spontaneous
  Country: US (occurrence: None)
  Receive Date: 20120912
  Receipt Date: 20120912
  Transmission Date: 20130627
  Serious: Yes (Hospitalization)
  Sender: FDA-Public Use
  Company Number: None

PATIENT
  Age: 68 Year
  Sex: Male
  Weight: 62.2 kg

DRUGS (1)
  1. AMOXICILLIN/CLAVULANATE POTASSIUM [Suspect]
     Indication: SINUSITIS
     Dosage: 1 Tab
     Route: 048
     Dates: start: 20120705, end: 20120717

REACTIONS (4)
  - Renal failure acute [None]
  - Syncope [None]
  - Hypotension [None]
  - Asthenia [None]
